FAERS Safety Report 14702916 (Version 2)
Quarter: 2018Q2

REPORT INFORMATION
  Report Type: Report from Study
  Country: JP (occurrence: JP)
  Receive Date: 20180402
  Receipt Date: 20180423
  Transmission Date: 20180711
  Serious: Yes (Life-Threatening, Other)
  Sender: FDA-Public Use
  Company Number: JP-ALXN-A201701041AA

PATIENT
  Age: 3 Year
  Sex: Male

DRUGS (5)
  1. ONON [Concomitant]
     Active Substance: PRANLUKAST
     Indication: ASTHMA
     Dosage: 0.35 G, BID
     Route: 048
     Dates: start: 20150603
  2. ADEROXAL [Concomitant]
     Active Substance: PYRIDOXAL PHOSPHATE
     Indication: HYPOPHOSPHATASIA
     Dosage: 0.2 G, BID
     Route: 048
     Dates: start: 20130626
  3. ALCADOL [Concomitant]
     Indication: PRODUCT USED FOR UNKNOWN INDICATION
     Dosage: 0.03 ?G/KG, UNK
     Route: 065
  4. STRENSIQ [Suspect]
     Active Substance: ASFOTASE ALFA
     Indication: HYPOPHOSPHATASIA
     Dosage: 2 MG/KG, TIW
     Route: 058
     Dates: start: 20150907
  5. PYRIDOXINE HYDROCHLORIDE. [Concomitant]
     Active Substance: PYRIDOXINE HYDROCHLORIDE
     Indication: SEIZURE
     Dosage: 5 MG/KG, UNK
     Route: 065

REACTIONS (6)
  - Pulmonary oedema [Unknown]
  - Dyspnoea [Recovered/Resolved]
  - Pulpitis dental [Not Recovered/Not Resolved]
  - Dental caries [Recovered/Resolved]
  - Gingivitis [Not Recovered/Not Resolved]
  - Injection site reaction [Not Recovered/Not Resolved]

NARRATIVE: CASE EVENT DATE: 201701
